FAERS Safety Report 25190091 (Version 1)
Quarter: 2025Q2

REPORT INFORMATION
  Report Type: Spontaneous
  Country: US (occurrence: US)
  Receive Date: 20250411
  Receipt Date: 20250411
  Transmission Date: 20250716
  Serious: Yes (Hospitalization)
  Sender: VERTEX
  Company Number: US-VERTEX PHARMACEUTICALS-2025-005565

PATIENT
  Sex: Female

DRUGS (1)
  1. TRIKAFTA [Suspect]
     Active Substance: ELEXACAFTOR\IVACAFTOR\TEZACAFTOR
     Indication: Cystic fibrosis
     Route: 048
     Dates: start: 2019

REACTIONS (11)
  - Headache [Unknown]
  - Brain fog [Unknown]
  - Hospitalisation [Unknown]
  - Insomnia [Unknown]
  - Loss of personal independence in daily activities [Recovering/Resolving]
  - Fatigue [Recovering/Resolving]
  - Diabetes mellitus inadequate control [Recovering/Resolving]
  - Sleep apnoea syndrome [Unknown]
  - Impatience [Unknown]
  - Anger [Unknown]
  - Frustration tolerance decreased [Unknown]
